FAERS Safety Report 4578372-7 (Version None)
Quarter: 2005Q1

REPORT INFORMATION
  Report Type: 
  Country: None (occurrence: None)
  Receive Date: 20050202
  Receipt Date: 20050202
  Transmission Date: 20050727
  Serious: Yes (Life-Threatening)
  Sender: FDA-Public Use
  Company Number: None

PATIENT
  Age: 63 Year
  Sex: Female
  Weight: 121.564 kg

DRUGS (1)
  1. VIOXX [Suspect]
     Indication: OSTEOARTHRITIS
     Dosage: 25 MG -1-2 DAILY
     Dates: start: 20000212, end: 20041001

REACTIONS (4)
  - BALANCE DISORDER [None]
  - DIZZINESS [None]
  - MUSCLE TIGHTNESS [None]
  - VISION BLURRED [None]
